FAERS Safety Report 25680780 (Version 1)
Quarter: 2025Q3

REPORT INFORMATION
  Report Type: Spontaneous
  Country: KR (occurrence: KR)
  Receive Date: 20250814
  Receipt Date: 20250814
  Transmission Date: 20251020
  Serious: Yes (Hospitalization)
  Sender: AMGEN
  Company Number: KR-AMGEN-KORSP2025156502

PATIENT
  Age: 36 Year
  Sex: Female

DRUGS (9)
  1. FILGRASTIM [Suspect]
     Active Substance: FILGRASTIM
     Indication: Neutropenia
     Dosage: 250 MICROGRAM, QD (D16 TO D28 FOR 12 DAYS)
     Route: 058
  2. CYCLOPHOSPHAMIDE [Concomitant]
     Active Substance: CYCLOPHOSPHAMIDE
     Indication: Invasive ductal breast carcinoma
     Route: 065
  3. EPIRUBICIN [Concomitant]
     Active Substance: EPIRUBICIN
     Indication: Invasive ductal breast carcinoma
     Route: 065
  4. FLUOROURACIL [Concomitant]
     Active Substance: FLUOROURACIL
     Indication: Invasive ductal breast carcinoma
     Route: 065
  5. PACLITAXEL [Concomitant]
     Active Substance: PACLITAXEL
     Indication: Invasive ductal breast carcinoma
     Route: 065
  6. MITOXANTRONE [Concomitant]
     Active Substance: MITOXANTRONE HYDROCHLORIDE
     Indication: Invasive ductal breast carcinoma
     Route: 065
  7. IFOSFAMIDE [Concomitant]
     Active Substance: IFOSFAMIDE
     Indication: Invasive ductal breast carcinoma
     Route: 065
  8. CARBOPLATIN [Concomitant]
     Active Substance: CARBOPLATIN
     Indication: Invasive ductal breast carcinoma
     Route: 065
  9. ETOPOSIDE [Concomitant]
     Active Substance: ETOPOSIDE
     Indication: Invasive ductal breast carcinoma
     Route: 065

REACTIONS (2)
  - Dermatitis psoriasiform [Recovered/Resolved]
  - White blood cell count increased [Recovered/Resolved]
